FAERS Safety Report 9259310 (Version 1)
Quarter: 2013Q2

REPORT INFORMATION
  Report Type: Spontaneous
  Country: FR (occurrence: FR)
  Receive Date: 20130427
  Receipt Date: 20130427
  Transmission Date: 20140414
  Serious: Yes (Hospitalization)
  Sender: FDA-Public Use
  Company Number: FR-ROCHE-1218521

PATIENT
  Age: 9 Year
  Sex: Male

DRUGS (4)
  1. VESANOID [Suspect]
     Indication: PRODUCT USED FOR UNKNOWN INDICATION
     Dosage: RE-INTRODUCED
     Route: 048
     Dates: start: 20121109, end: 20121117
  2. VESANOID [Suspect]
     Dosage: DAY 1 TO DAY 30 30 MG DAILY
     Route: 048
     Dates: start: 20121002, end: 20121101
  3. CYTARABINE [Concomitant]
     Route: 065
  4. MITOXANTRONE [Concomitant]
     Route: 065

REACTIONS (2)
  - Headache [Recovered/Resolved]
  - Pyrexia [Recovered/Resolved]
